FAERS Safety Report 9753679 (Version 2)
Quarter: 2014Q1

REPORT INFORMATION
  Report Type: Spontaneous
  Country: JP (occurrence: JP)
  Receive Date: 20131213
  Receipt Date: 20140101
  Transmission Date: 20141002
  Serious: Yes (Life-Threatening, Hospitalization)
  Sender: FDA-Public Use
  Company Number: US-ASTRAZENECA-2013SE90649

PATIENT
  Age: 78 Year
  Sex: Female
  Weight: 44 kg

DRUGS (8)
  1. ECARD COMBINATION TABLETS HD [Suspect]
     Indication: HYPERTENSION
     Dosage: 1 DF, EVERYDAY
     Route: 048
     Dates: start: 20100524, end: 20130802
  2. CYMBALTA [Suspect]
     Indication: DEPRESSION
     Route: 048
     Dates: start: 20130727
  3. GLIMICRON [Concomitant]
     Indication: DIABETES MELLITUS
     Route: 048
     Dates: start: 20101126
  4. CRESTOR [Concomitant]
     Indication: HYPERLIPIDAEMIA
     Route: 048
     Dates: start: 20100119
  5. MYSLEE [Concomitant]
     Indication: INSOMNIA
     Route: 048
     Dates: start: 20110826
  6. EQUA [Concomitant]
     Indication: DIABETES MELLITUS
     Route: 048
     Dates: start: 20110826
  7. GASTER D [Concomitant]
     Indication: GASTRITIS
     Route: 048
     Dates: start: 20120225
  8. NAUZELIN [Concomitant]
     Indication: VOMITING
     Route: 048
     Dates: start: 20130731, end: 20130802

REACTIONS (3)
  - Loss of consciousness [Recovered/Resolved]
  - Hyponatraemia [Recovered/Resolved]
  - Fall [Recovered/Resolved]
